FAERS Safety Report 13835245 (Version 1)
Quarter: 2017Q3

REPORT INFORMATION
  Report Type: Spontaneous
  Country: US (occurrence: US)
  Receive Date: 20170804
  Receipt Date: 20170804
  Transmission Date: 20171127
  Serious: Yes (Other)
  Sender: FDA-Public Use
  Company Number: US-ACCORD-056547

PATIENT
  Age: 61 Year
  Sex: Female
  Weight: 54.43 kg

DRUGS (7)
  1. ERGOCALCIFEROL. [Concomitant]
     Active Substance: ERGOCALCIFEROL
     Dosage: TWICE A DAY
  2. TACROLIMUS ACCORD [Suspect]
     Active Substance: TACROLIMUS
     Indication: IMMUNOSUPPRESSANT DRUG THERAPY
     Dosage: CAPSULES BY MOUTH, 1 MG AND 0.5 MG CAPSULE TO MAKE 1.5 MG TWICE A DAY.
     Route: 048
     Dates: start: 20170608
  3. SERTRALINE [Concomitant]
     Active Substance: SERTRALINE HYDROCHLORIDE
     Dosage: TWO 50 MG OVAL BLUE ELONGATED TABLET AT NIGHT
  4. SIROLIMUS WYETH [Suspect]
     Active Substance: SIROLIMUS
     Indication: IMMUNOSUPPRESSANT DRUG THERAPY
     Dosage: 1 MG COATED TRIANGULAR TABLET BY MOUTH ONCE A DAY.
     Route: 048
     Dates: start: 20170608
  5. ASCORBIC ACID/ERGOCALCIFEROL/FOLIC ACID/NICOTINAMIDE/PANTHENOL/RETINOL/RIBOFLAVIN/THIAMINE HYDROCHLO [Concomitant]
  6. SIMVASTATIN. [Concomitant]
     Active Substance: SIMVASTATIN
  7. CALTRATE [Concomitant]
     Active Substance: CALCIUM CARBONATE

REACTIONS (6)
  - Surgery [Unknown]
  - General physical health deterioration [None]
  - Pain in extremity [None]
  - Foot deformity [None]
  - Gait disturbance [None]
  - Bunion operation [None]

NARRATIVE: CASE EVENT DATE: 20170614
